FAERS Safety Report 8399241-0 (Version None)
Quarter: 2012Q2

REPORT INFORMATION
  Report Type: 
  Country: None (occurrence: None)
  Receive Date: 20120531
  Receipt Date: 20120523
  Transmission Date: 20120825
  Serious: Yes (Hospitalization)
  Sender: FDA-Public Use
  Company Number: US-GLAXOSMITHKLINE-A0979519A

PATIENT
  Sex: Female

DRUGS (2)
  1. PAXIL [Suspect]
     Indication: PRODUCT USED FOR UNKNOWN INDICATION
     Dosage: 30MG PER DAY
     Route: 064
     Dates: start: 20010101
  2. MULTI-VITAMINS [Concomitant]

REACTIONS (3)
  - VESICOURETERIC REFLUX [None]
  - HORNER'S SYNDROME [None]
  - FOETAL EXPOSURE DURING PREGNANCY [None]
